FAERS Safety Report 8327430-X (Version None)
Quarter: 2012Q2

REPORT INFORMATION
  Report Type: 
  Country: None (occurrence: None)
  Receive Date: 20120419
  Receipt Date: 20120406
  Transmission Date: 20120825
  Serious: Yes (Death, Hospitalization, Other)
  Sender: FDA-Public Use
  Company Number: 2012PROUSA01213

PATIENT
  Age: 70 Year
  Sex: Male
  Weight: 99.2 kg

DRUGS (15)
  1. LOVENOX [Concomitant]
  2. PREDNISONE TAB [Concomitant]
  3. PROVENGE [Suspect]
     Indication: PROSTATE CANCER METASTATIC
     Dosage: 250 ML, SINGLE, INTRAVENOUS 250 ML, SINGLE, INTRAVENOUS
     Route: 042
     Dates: start: 20120227, end: 20120227
  4. PROVENGE [Suspect]
     Indication: PROSTATE CANCER METASTATIC
     Dosage: 250 ML, SINGLE, INTRAVENOUS 250 ML, SINGLE, INTRAVENOUS
     Route: 042
     Dates: start: 20120312, end: 20120312
  5. CYCLOBENZAPRINE [Concomitant]
  6. CLONAZEPAM [Concomitant]
  7. WARFARIN SODIUM [Concomitant]
  8. WELLBUTRIN [Concomitant]
  9. OXYCODONE HCL [Concomitant]
  10. OMEPRAZOLE [Concomitant]
  11. OXYCODONE HYDROCHLORIDE EXTENDED RELEASE (OXYCODONE HYDROCHLORIDE) [Concomitant]
  12. PROVENGE [Suspect]
  13. MEGACE [Concomitant]
  14. CITALOPRAM HYDROBROMIDE [Concomitant]
  15. BICALUTAMIDE [Concomitant]

REACTIONS (9)
  - CEREBRAL HAEMORRHAGE [None]
  - ISCHAEMIC STROKE [None]
  - EMBOLIC STROKE [None]
  - PROSTATE CANCER METASTATIC [None]
  - ASTHENIA [None]
  - MUSCULOSKELETAL STIFFNESS [None]
  - MALAISE [None]
  - NEOPLASM PROGRESSION [None]
  - CEREBRAL SMALL VESSEL ISCHAEMIC DISEASE [None]
